FAERS Safety Report 9023024 (Version 2)
Quarter: 2014Q1

REPORT INFORMATION
  Report Type: Spontaneous
  Country: None (occurrence: US)
  Receive Date: 20130120
  Receipt Date: 20140206
  Transmission Date: 20141002
  Serious: No
  Sender: FDA-Public Use
  Company Number: US-ALLERGAN-1215615US

PATIENT
  Age: 41 Year
  Sex: Male

DRUGS (3)
  1. BOTOX [Suspect]
     Indication: MIGRAINE
     Dosage: 15 UNITS, SINGLE
     Route: 030
     Dates: start: 20121101, end: 20121101
  2. BOTOX [Suspect]
     Dosage: UNK
     Dates: start: 20130505, end: 20130505
  3. BOTOX [Suspect]
     Dosage: UNK
     Dates: start: 20130805, end: 20130805

REACTIONS (6)
  - Pharyngeal oedema [Not Recovered/Not Resolved]
  - Dysphagia [Not Recovered/Not Resolved]
  - Influenza like illness [Not Recovered/Not Resolved]
  - Paraesthesia [Not Recovered/Not Resolved]
  - Hypoaesthesia [Not Recovered/Not Resolved]
  - Hypoaesthesia [Not Recovered/Not Resolved]
